FAERS Safety Report 8814087 (Version 1)
Quarter: 2012Q4

REPORT INFORMATION
  Report Type: Spontaneous
  Country: US (occurrence: None)
  Receive Date: 20120926
  Receipt Date: 20120926
  Transmission Date: 20130627
  Serious: No
  Sender: FDA-Public Use
  Company Number: None

PATIENT

DRUGS (2)
  1. ROPINIROLE [Suspect]
  2. RISPERDAL [Suspect]

REACTIONS (4)
  - Drug dispensing error [None]
  - Wrong drug administered [None]
  - Anxiety [None]
  - Depressed level of consciousness [None]
